FAERS Safety Report 11711581 (Version 1)
Quarter: 2015Q4

REPORT INFORMATION
  Report Type: Spontaneous
  Country: US (occurrence: US)
  Receive Date: 20151104
  Receipt Date: 20151104
  Transmission Date: 20160304
  Serious: No
  Sender: FDA-Public Use
  Company Number: US-ELI_LILLY_AND_COMPANY-US201106001843

PATIENT
  Sex: Female

DRUGS (1)
  1. FORTEO [Suspect]
     Active Substance: TERIPARATIDE
     Indication: OSTEOPOROSIS
     Dosage: 20 UG, QD
     Route: 065
     Dates: start: 20110414

REACTIONS (15)
  - Rheumatoid arthritis [Unknown]
  - Pain [Unknown]
  - Abdominal pain upper [Recovered/Resolved]
  - Oedema peripheral [Unknown]
  - Abdominal discomfort [Recovered/Resolved]
  - Sleep disorder due to a general medical condition [Unknown]
  - Arthralgia [Unknown]
  - Hypoaesthesia [Unknown]
  - Movement disorder [Unknown]
  - Pain in extremity [Unknown]
  - Feeling abnormal [Unknown]
  - Sensory disturbance [Unknown]
  - Paraesthesia [Unknown]
  - Fear [Unknown]
  - Drug dose omission [Unknown]
